FAERS Safety Report 5097888-0 (Version None)
Quarter: 2006Q3

REPORT INFORMATION
  Report Type: 
  Country: None (occurrence: None)
  Receive Date: 20060905
  Receipt Date: 20060905
  Transmission Date: 20061208
  Serious: Yes (Hospitalization)
  Sender: FDA-Public Use
  Company Number: None

PATIENT
  Age: 62 Year
  Sex: Female

DRUGS (4)
  1. CAPECITABINE , 500 AND 150 MG TABS ROCHE [Suspect]
     Indication: COLON CANCER
     Dosage: 2300 MG BID PO
     Route: 048
     Dates: start: 20050816
  2. CAPECITABINE , 500 AND 150 MG TABS ROCHE [Suspect]
  3. OXALIPLATIN [Suspect]
  4. AVASTIN [Concomitant]

REACTIONS (3)
  - ASTHENIA [None]
  - DEHYDRATION [None]
  - DIARRHOEA [None]
